FAERS Safety Report 4820391-7 (Version None)
Quarter: 2005Q4

REPORT INFORMATION
  Report Type: 
  Country: None (occurrence: None)
  Receive Date: 20051104
  Receipt Date: 20040510
  Transmission Date: 20060501
  Serious: Yes (Death)
  Sender: FDA-Public Use
  Company Number: 2004GB01160

PATIENT
  Age: 93 Year
  Sex: Female
  Weight: 65 kg

DRUGS (6)
  1. QUETIAPINE FUMARATE [Suspect]
     Indication: AGITATION
     Route: 048
     Dates: start: 20040408
  2. QUETIAPINE FUMARATE [Suspect]
     Indication: EMOTIONAL DISTRESS
     Route: 048
     Dates: start: 20040408
  3. RISPERIDONE [Concomitant]
     Indication: AGITATION
     Dosage: 500 MCG TO 1 MG
     Route: 048
     Dates: start: 20020601, end: 20040310
  4. ASPIRIN [Concomitant]
     Indication: AGITATION
     Route: 048
  5. LACTULOSE [Concomitant]
     Route: 065
  6. ZOPICLONE [Concomitant]
     Route: 065

REACTIONS (3)
  - CORONARY ARTERY DISEASE [None]
  - DEMENTIA [None]
  - SUDDEN DEATH [None]
